FAERS Safety Report 4320923-1 (Version None)
Quarter: 2004Q1

REPORT INFORMATION
  Report Type: 
  Country: None (occurrence: None)
  Receive Date: 20040318
  Receipt Date: 20040305
  Transmission Date: 20041129
  Serious: Yes (Other)
  Sender: FDA-Public Use
  Company Number: 205083

PATIENT
  Age: 69 Year
  Sex: Male
  Weight: 57 kg

DRUGS (6)
  1. RITUXAN [Suspect]
     Dosage: 550 MG
     Dates: start: 20021202, end: 20030203
  2. ETOPOSIDE [Suspect]
     Dosage: 50 MG
     Dates: start: 20021203, end: 20030205
  3. CYCLOPHOSPHAMIDE [Suspect]
     Dosage: 750 MG
     Dates: start: 20021203, end: 20030205
  4. DOXORUBICIN (DOXORUBICIN, DOXORUBICIN HYDROCHLORIDE) [Suspect]
     Dosage: 10 MG
     Dates: start: 20021203, end: 20030205
  5. VINCRISTINE [Suspect]
     Dosage: 0.4 M G
     Dates: start: 20021203, end: 20030205
  6. PREDNISOLONE [Suspect]
     Dosage: 60 MG
     Dates: start: 20021203, end: 20030205

REACTIONS (5)
  - DISEASE RECURRENCE [None]
  - LYMPHOMA [None]
  - NEUTROPHIL PERCENTAGE DECREASED [None]
  - PLATELET COUNT DECREASED [None]
  - WHITE BLOOD CELL COUNT DECREASED [None]
